FAERS Safety Report 16176584 (Version 1)
Quarter: 2019Q2

REPORT INFORMATION
  Report Type: Spontaneous
  Country: AR (occurrence: AR)
  Receive Date: 20190409
  Receipt Date: 20190409
  Transmission Date: 20190711
  Serious: Yes (Other)
  Sender: FDA-Public Use
  Company Number: AR-AMGEN-ARGSP2019053481

PATIENT
  Age: 39 Year
  Sex: Female
  Weight: 64 kg

DRUGS (4)
  1. PROLIA [Suspect]
     Active Substance: DENOSUMAB
     Indication: OSTEOPOROSIS
     Dosage: 60 MILLIGRAM, Q6MO
     Route: 058
     Dates: start: 20180820
  2. LAMOTRIGINE. [Concomitant]
     Active Substance: LAMOTRIGINE
  3. PALBOCICLIB [Concomitant]
     Active Substance: PALBOCICLIB
     Dosage: UNK
     Dates: start: 201703
  4. LETROZOL [Concomitant]
     Active Substance: LETROZOLE
     Dosage: UNK
     Dates: start: 201703

REACTIONS (1)
  - Osteonecrosis [Not Recovered/Not Resolved]

NARRATIVE: CASE EVENT DATE: 201903
